FAERS Safety Report 12415196 (Version 3)
Quarter: 2016Q2

REPORT INFORMATION
  Report Type: Spontaneous
  Country: FR (occurrence: FR)
  Receive Date: 20160530
  Receipt Date: 20160628
  Transmission Date: 20160815
  Serious: Yes (Other)
  Sender: FDA-Public Use
  Company Number: FR-009507513-1605FRA013077

PATIENT
  Age: 31 Year
  Sex: Female
  Weight: 49 kg

DRUGS (1)
  1. NEXPLANON [Suspect]
     Active Substance: ETONOGESTREL
     Indication: CONTRACEPTION
     Dosage: LEFT ARM (RIGHT-HANDED), UNK
     Route: 059
     Dates: start: 20160410, end: 20160525

REACTIONS (5)
  - Headache [Recovering/Resolving]
  - Dizziness [Unknown]
  - Post abortion haemorrhage [Unknown]
  - Pruritus [Recovered/Resolved]
  - Asthenia [Recovering/Resolving]

NARRATIVE: CASE EVENT DATE: 2016
